FAERS Safety Report 6310080-4 (Version None)
Quarter: 2009Q3

REPORT INFORMATION
  Report Type: 
  Country: None (occurrence: None)
  Receive Date: 20090814
  Receipt Date: 20090807
  Transmission Date: 20100115
  Serious: Yes (Other)
  Sender: FDA-Public Use
  Company Number: JP-JNJFOC-20090702725

PATIENT
  Sex: Male
  Weight: 57 kg

DRUGS (4)
  1. ITRIZOLE [Suspect]
     Indication: ONYCHOMYCOSIS
     Route: 048
  2. CONIEL [Concomitant]
     Indication: HYPERTENSION
     Route: 048
  3. ARTIST [Concomitant]
     Indication: HYPERTENSION
     Route: 048
  4. QUINAPRIL HCL [Concomitant]
     Indication: HYPERTENSION
     Route: 048

REACTIONS (3)
  - CARDIAC FAILURE [None]
  - CARDIOMEGALY [None]
  - WEIGHT INCREASED [None]
